FAERS Safety Report 16109120 (Version 1)
Quarter: 2019Q1

REPORT INFORMATION
  Report Type: Spontaneous
  Country: US (occurrence: US)
  Receive Date: 20190323
  Receipt Date: 20190323
  Transmission Date: 20190418
  Serious: No
  Sender: FDA-Public Use
  Company Number: US-THERAPEUTICSMD-2019TMD00153

PATIENT
  Age: 56 Year
  Sex: Female
  Weight: 66.67 kg

DRUGS (4)
  1. IMVEXXY [Suspect]
     Active Substance: ESTRADIOL
     Indication: VULVOVAGINAL DRYNESS
     Dosage: 10 ?G, 2X/WEEK BEFORE BEDTIME
     Route: 067
     Dates: start: 20190123, end: 2019
  2. IMVEXXY [Suspect]
     Active Substance: ESTRADIOL
     Dosage: 10 ?G, 1X/WEEK BEFORE BEDTIME
     Route: 067
     Dates: start: 2019, end: 20190213
  3. DULOXETINE. [Concomitant]
     Active Substance: DULOXETINE
     Indication: VULVOVAGINAL DRYNESS
     Dosage: 30 MG, 1X/DAY
     Dates: start: 201811
  4. L-THYROXINE [Concomitant]
     Active Substance: LEVOTHYROXINE
     Dosage: 50 ?G, 1X/DAY
     Dates: start: 2009

REACTIONS (3)
  - Nausea [Recovering/Resolving]
  - Off label use [Recovered/Resolved]
  - Migraine [Recovering/Resolving]

NARRATIVE: CASE EVENT DATE: 20190123
